FAERS Safety Report 4612525-4 (Version None)
Quarter: 2005Q1

REPORT INFORMATION
  Report Type: 
  Country: None (occurrence: None)
  Receive Date: 20050316
  Receipt Date: 20050316
  Transmission Date: 20050727
  Serious: Yes (Other)
  Sender: FDA-Public Use
  Company Number: None

PATIENT
  Age: 57 Year
  Sex: Female
  Weight: 56 kg

DRUGS (2)
  1. FENTANYL (GENERIC) 100 MCG PATCHES [Suspect]
     Indication: DEEP VEIN THROMBOSIS
     Dosage: 1 EVERY 48 HRS
     Route: 062
     Dates: start: 20051024
  2. FENTANYL (GENERIC) 100 MCG PATCHES [Suspect]
     Indication: NEUROPATHIC PAIN
     Dosage: 1 EVERY 48 HRS
     Route: 062
     Dates: start: 20051024

REACTIONS (2)
  - DRUG EFFECT DECREASED [None]
  - PHARMACEUTICAL PRODUCT COMPLAINT [None]
